FAERS Safety Report 9496446 (Version 1)
Quarter: 2013Q3

REPORT INFORMATION
  Report Type: Report from Study
  Country: CO (occurrence: CO)
  Receive Date: 20130904
  Receipt Date: 20130904
  Transmission Date: 20140515
  Serious: Yes (Life-Threatening, Hospitalization)
  Sender: FDA-Public Use
  Company Number: CO-SANOFI-AVENTIS-2013SA087551

PATIENT
  Age: 67 Year
  Sex: Female

DRUGS (9)
  1. LANTUS [Suspect]
     Indication: DIABETES MELLITUS
     Dosage: DOSE:54 UNIT(S)
     Route: 058
     Dates: start: 2010
  2. APIDRA [Suspect]
     Indication: DIABETES MELLITUS
     Dosage: DOSE :15 AM-12PM-4PM UNITS AFTER MEALS
     Route: 058
     Dates: start: 2010
  3. RANIBIZUMAB [Concomitant]
     Indication: VITREOUS HAEMORRHAGE
     Route: 031
     Dates: start: 201308
  4. CARVEDILOL [Concomitant]
     Indication: CARDIAC FAILURE CONGESTIVE
     Route: 048
  5. APROVEL [Concomitant]
     Indication: HYPERTENSION
     Route: 048
  6. CLOPIDOGREL [Concomitant]
     Indication: CORONARY ARTERY DISEASE
     Route: 048
     Dates: start: 2011
  7. FUROSEMIDE [Concomitant]
     Indication: CARDIAC FAILURE CONGESTIVE
     Route: 048
  8. LEVOTHYROXINE [Concomitant]
     Indication: HYPOTHYROIDISM
     Route: 048
  9. ACETYLSALICYLIC ACID [Concomitant]
     Indication: CORONARY ARTERY DISEASE
     Route: 048

REACTIONS (3)
  - Acute myocardial infarction [Recovering/Resolving]
  - Hypertensive crisis [Recovering/Resolving]
  - Hyperglycaemia [Recovering/Resolving]
